FAERS Safety Report 20228019 (Version 2)
Quarter: 2021Q4

REPORT INFORMATION
  Report Type: Report from Study
  Country: US (occurrence: US)
  Receive Date: 20211224
  Receipt Date: 20211230
  Transmission Date: 20220303
  Serious: Yes (Hospitalization, Other)
  Sender: FDA-Public Use
  Company Number: US-ABBVIE-21K-163-4205041-00

PATIENT
  Sex: Female

DRUGS (2)
  1. HUMIRA [Suspect]
     Active Substance: ADALIMUMAB
     Indication: Crohn^s disease
     Dosage: CITRATE FREE
     Route: 058
     Dates: start: 20210814
  2. PFIZER-BIONTECH COVID-19 VACCINE [Concomitant]
     Active Substance: TOZINAMERAN
     Indication: COVID-19 immunisation
     Route: 030

REACTIONS (7)
  - Loss of consciousness [Recovered/Resolved]
  - Clavicle fracture [Unknown]
  - Road traffic accident [Unknown]
  - Wrist fracture [Unknown]
  - Pain [Recovering/Resolving]
  - Daydreaming [Unknown]
  - Device issue [Unknown]

NARRATIVE: CASE EVENT DATE: 20210101
